FAERS Safety Report 21623468 (Version 12)
Quarter: 2025Q1

REPORT INFORMATION
  Report Type: Report from Study
  Country: DE (occurrence: DE)
  Receive Date: 20221121
  Receipt Date: 20250121
  Transmission Date: 20250408
  Serious: No
  Sender: ROCHE
  Company Number: DE-ROCHE-3222092

PATIENT
  Age: 48 Year
  Sex: Female

DRUGS (6)
  1. OCREVUS [Suspect]
     Active Substance: OCRELIZUMAB
     Indication: Relapsing-remitting multiple sclerosis
     Dosage: SUBSEQUENT DOSE 600MG FOR 209 DAYS
     Route: 042
     Dates: start: 20221019
  2. MIRTAZAPINE [Suspect]
     Active Substance: MIRTAZAPINE
     Indication: Product used for unknown indication
     Route: 065
  3. NAPROXEN [Concomitant]
     Active Substance: NAPROXEN
  4. IBUPROFEN [Concomitant]
     Active Substance: IBUPROFEN
     Indication: Ear pain
  5. IBUPROFEN [Concomitant]
     Active Substance: IBUPROFEN
     Indication: Oropharyngeal pain
  6. ZOVIRAX [Concomitant]
     Active Substance: ACYCLOVIR

REACTIONS (26)
  - Pain in extremity [Not Recovered/Not Resolved]
  - Oral herpes [Not Recovered/Not Resolved]
  - Influenza like illness [Recovered/Resolved]
  - Abdominal pain upper [Recovering/Resolving]
  - Conjunctivitis [Recovered/Resolved]
  - Seasonal allergy [Recovered/Resolved]
  - Asthenia [Recovered/Resolved]
  - Fall [Unknown]
  - Skin abrasion [Recovered/Resolved]
  - Musculoskeletal chest pain [Recovered/Resolved]
  - Muscle strain [Recovering/Resolving]
  - Initial insomnia [Not Recovered/Not Resolved]
  - Pruritus [Recovering/Resolving]
  - Burning sensation [Recovering/Resolving]
  - Aphthous ulcer [Recovered/Resolved]
  - Restless legs syndrome [Recovering/Resolving]
  - Cystitis noninfective [Recovered/Resolved]
  - COVID-19 [Recovered/Resolved]
  - Fatigue [Recovered/Resolved]
  - Fatigue [Not Recovered/Not Resolved]
  - Genital infection fungal [Recovered/Resolved]
  - Bronchitis [Recovered/Resolved]
  - Cystitis noninfective [Recovered/Resolved]
  - Laryngitis viral [Recovered/Resolved]
  - Oral herpes [Recovered/Resolved]
  - Blood immunoglobulin M decreased [Not Recovered/Not Resolved]

NARRATIVE: CASE EVENT DATE: 20221026
